FAERS Safety Report 5729135-8 (Version None)
Quarter: 2008Q2

REPORT INFORMATION
  Report Type: 
  Country: None (occurrence: None)
  Receive Date: 20080506
  Receipt Date: 20080428
  Transmission Date: 20081010
  Serious: Yes (Other)
  Sender: FDA-Public Use
  Company Number: US-PFIZER INC-2008037232

PATIENT
  Sex: Male
  Weight: 84.09 kg

DRUGS (6)
  1. EXUBERA [Suspect]
     Indication: DIABETES MELLITUS
  2. VERAPAMIL [Concomitant]
     Indication: HYPERTENSION
  3. TOPROL-XL [Concomitant]
     Indication: HYPERTENSION
  4. LASIX [Concomitant]
     Indication: HYPERTENSION
  5. GLYBURIDE [Concomitant]
  6. LIPITOR [Concomitant]
     Indication: BLOOD CHOLESTEROL INCREASED

REACTIONS (1)
  - RENAL FAILURE [None]
